FAERS Safety Report 10340668 (Version 1)
Quarter: 2014Q3

REPORT INFORMATION
  Report Type: Spontaneous
  Country: CL (occurrence: CL)
  Receive Date: 20140724
  Receipt Date: 20140724
  Transmission Date: 20150326
  Serious: Yes (Other)
  Sender: FDA-Public Use
  Company Number: CL-PFIZER INC-2014202605

PATIENT
  Age: 85 Year
  Sex: Female

DRUGS (2)
  1. XALATAN [Suspect]
     Active Substance: LATANOPROST
     Dosage: 1 GTT, 1X/DAY
     Route: 047
  2. GLAFORNIL [Concomitant]
     Dosage: UNK

REACTIONS (5)
  - Blood glucose increased [Unknown]
  - Cataract [Unknown]
  - Osteoporosis [Unknown]
  - Osteoarthritis [Unknown]
  - Glaucoma [Unknown]

NARRATIVE: CASE EVENT DATE: 2012
